FAERS Safety Report 17580301 (Version 1)
Quarter: 2020Q1

REPORT INFORMATION
  Report Type: Spontaneous
  Country: US (occurrence: US)
  Receive Date: 20200324
  Receipt Date: 20200324
  Transmission Date: 20200409
  Serious: Yes (Death, Life-Threatening, Other)
  Sender: FDA-Public Use
  Company Number: None

PATIENT
  Sex: Male
  Weight: 50.4 kg

DRUGS (3)
  1. WEI LC BALANCER [HERBALS] [Suspect]
     Active Substance: HERBALS
     Indication: PULMONARY FIBROSIS
     Dosage: QUANTITY: 2 CAPSULES
     Route: 048
  2. WEI SOUP A [HERBALS] [Suspect]
     Active Substance: HERBALS
     Indication: PULMONARY FIBROSIS
     Dosage: ?          QUANTITY:2 CAPSULE(S);?
     Route: 048
  3. WEI SOUP B [HERBALS] [Suspect]
     Active Substance: HERBALS
     Indication: PULMONARY FIBROSIS
     Dosage: QUANITY: 2 CAPSULES
     Route: 048

REACTIONS (6)
  - Oxygen saturation decreased [None]
  - Gait inability [None]
  - Respiratory failure [None]
  - Dyspnoea [None]
  - Product advertising issue [None]
  - Condition aggravated [None]
